FAERS Safety Report 10740540 (Version 2)
Quarter: 2015Q1

REPORT INFORMATION
  Report Type: Spontaneous
  Country: GB (occurrence: GB)
  Receive Date: 20150127
  Receipt Date: 20150305
  Transmission Date: 20150721
  Serious: Yes (Other)
  Sender: FDA-Public Use
  Company Number: GB-JNJFOC-20150111975

PATIENT
  Age: 76 Year
  Sex: Male

DRUGS (1)
  1. XARELTO [Suspect]
     Active Substance: RIVAROXABAN
     Indication: PRODUCT USED FOR UNKNOWN INDICATION
     Route: 048
     Dates: start: 20150106, end: 20150109

REACTIONS (12)
  - Aphagia [Recovering/Resolving]
  - Hallucination [Unknown]
  - Hyperhidrosis [Unknown]
  - Swollen tongue [Recovering/Resolving]
  - Somnolence [Unknown]
  - Swelling face [Recovering/Resolving]
  - Fatigue [Unknown]
  - Local swelling [Recovering/Resolving]
  - Headache [Unknown]
  - Dry mouth [Unknown]
  - Abnormal dreams [Unknown]
  - Pharyngeal oedema [Recovering/Resolving]

NARRATIVE: CASE EVENT DATE: 20150109
